FAERS Safety Report 10891400 (Version 1)
Quarter: 2015Q1

REPORT INFORMATION
  Report Type: Spontaneous
  Country: US (occurrence: US)
  Receive Date: 20150306
  Receipt Date: 20150306
  Transmission Date: 20150721
  Serious: No
  Sender: FDA-Public Use
  Company Number: US-ASTRAZENECA-2015SE19035

PATIENT
  Age: 43 Year
  Sex: Female
  Weight: 140.6 kg

DRUGS (11)
  1. METHOTREXATE [Concomitant]
     Active Substance: METHOTREXATE
     Indication: AUTOIMMUNE DISORDER
  2. LANTUS [Concomitant]
     Active Substance: INSULIN GLARGINE
     Indication: DIABETES MELLITUS
  3. NOVOLOG [Concomitant]
     Active Substance: INSULIN ASPART
     Indication: DIABETES MELLITUS
  4. FOLIC ACID. [Concomitant]
     Active Substance: FOLIC ACID
     Indication: AUTOIMMUNE DISORDER
  5. CELLSETT [Concomitant]
     Indication: RENAL DISORDER
     Dosage: DAILY
     Route: 048
  6. METOPROLOL HCTZ [Concomitant]
     Indication: BLOOD PRESSURE ABNORMAL
     Dosage: TWO TIMES A DAY
  7. PREGNAZONE [Concomitant]
     Indication: AUTOIMMUNE DISORDER
  8. POTASSIUM [Concomitant]
     Active Substance: POTASSIUM
     Indication: BLOOD POTASSIUM ABNORMAL
  9. LOSARTAN [Concomitant]
     Active Substance: LOSARTAN
     Indication: BLOOD PRESSURE ABNORMAL
  10. BYDUREON [Suspect]
     Active Substance: EXENATIDE
     Indication: DIABETES MELLITUS
     Route: 058
     Dates: start: 2015, end: 20150222
  11. DEPO-PROVERA [Suspect]
     Active Substance: MEDROXYPROGESTERONE ACETATE
     Indication: CONTRACEPTION
     Route: 065
     Dates: start: 201407

REACTIONS (7)
  - Injection site pruritus [Not Recovered/Not Resolved]
  - Nausea [Recovering/Resolving]
  - Diarrhoea [Recovered/Resolved]
  - Vomiting [Recovered/Resolved]
  - Intentional product misuse [Unknown]
  - Menorrhagia [Not Recovered/Not Resolved]
  - Genital pain [Not Recovered/Not Resolved]

NARRATIVE: CASE EVENT DATE: 2015
